FAERS Safety Report 24779213 (Version 1)
Quarter: 2024Q4

REPORT INFORMATION
  Report Type: Spontaneous
  Country: CH (occurrence: CH)
  Receive Date: 20241226
  Receipt Date: 20241226
  Transmission Date: 20250115
  Serious: Yes (Other)
  Sender: AMNEAL
  Company Number: CH-AMNEAL PHARMACEUTICALS-2024-AMRX-04605

PATIENT

DRUGS (4)
  1. ZOMIG [Suspect]
     Active Substance: ZOLMITRIPTAN
     Indication: Migraine with aura
     Dosage: 5 MILLIGRAM, AS NEEDED
     Route: 045
  2. ATOGEPANT [Suspect]
     Active Substance: ATOGEPANT
     Indication: Migraine with aura
     Dosage: 60 MILLIGRAM, 1 /DAY
     Route: 048
     Dates: start: 20241102, end: 20241112
  3. VENTOLIN [Concomitant]
     Active Substance: ALBUTEROL SULFATE
     Indication: Asthma
     Dosage: UNK
     Route: 065
  4. PULMICORT TURBUHALER [Concomitant]
     Active Substance: BUDESONIDE
     Indication: Asthma
     Route: 065

REACTIONS (1)
  - Cardiac failure [Not Recovered/Not Resolved]

NARRATIVE: CASE EVENT DATE: 20241115
